FAERS Safety Report 7250207-3 (Version None)
Quarter: 2011Q1

REPORT INFORMATION
  Report Type: 
  Country: None (occurrence: None)
  Receive Date: 20110128
  Receipt Date: 20101231
  Transmission Date: 20110831
  Serious: Yes (Other)
  Sender: FDA-Public Use
  Company Number: US-BAYER-201037638NA

PATIENT
  Sex: Female

DRUGS (3)
  1. LIDOCAINE HYDROCHLORIDE IN PLASTIC CONTAINER [Concomitant]
     Dosage: 2%
  2. BETASERON [Suspect]
     Indication: MULTIPLE SCLEROSIS
     Dosage: UNK
     Route: 058
     Dates: start: 19940101
  3. BETADINE [Concomitant]

REACTIONS (5)
  - GASTROINTESTINAL DISORDER [None]
  - ANAEMIA [None]
  - WEIGHT DECREASED [None]
  - BONE MARROW DISORDER [None]
  - BACK PAIN [None]
